FAERS Safety Report 4520078-4 (Version None)
Quarter: 2004Q4

REPORT INFORMATION
  Report Type: 
  Country: None (occurrence: None)
  Receive Date: 20041029
  Receipt Date: 20040728
  Transmission Date: 20050328
  Serious: No
  Sender: FDA-Public Use
  Company Number: 2004-119031-NL

PATIENT
  Age: 20 Year
  Sex: Female
  Weight: 76.3 kg

DRUGS (6)
  1. NUVARING [Suspect]
     Indication: CONTRACEPTION
     Dosage: DF DAILY, VAGINAL
     Route: 067
     Dates: start: 20040531
  2. ZYRTEC [Concomitant]
  3. SINGULAIR [Concomitant]
  4. ADVAIR DISKUS 100/50 [Concomitant]
  5. ALBUTEROL [Concomitant]
  6. TRAZODONE HCL [Concomitant]

REACTIONS (2)
  - UNINTENDED PREGNANCY [None]
  - VAGINAL CONTRACEPTIVE DEVICE EXPELLED [None]
